FAERS Safety Report 5192105-5 (Version None)
Quarter: 2006Q4

REPORT INFORMATION
  Report Type: 
  Country: None (occurrence: None)
  Receive Date: 20061227
  Receipt Date: 20060921
  Transmission Date: 20070319
  Serious: Yes (Other)
  Sender: FDA-Public Use
  Company Number: US-PFIZER INC-2006116453

PATIENT
  Sex: Female
  Weight: 60.8 kg

DRUGS (8)
  1. PREDNISONE TAB [Suspect]
     Indication: ARTHRITIS
  2. LYRICA [Suspect]
     Indication: BURNING SENSATION
  3. LYRICA [Suspect]
     Indication: NERVE COMPRESSION
  4. LYRICA [Suspect]
     Indication: NEUROPATHY
  5. TRICOR [Concomitant]
  6. TOPROL-XL [Concomitant]
  7. PROPOXYPHENE NAPSYLATE W/ ACETAMINOPHEN [Concomitant]
  8. NEXIUM [Concomitant]

REACTIONS (13)
  - ABDOMINAL DISTENSION [None]
  - CATARACT [None]
  - CONSTIPATION [None]
  - COORDINATION ABNORMAL [None]
  - DIZZINESS [None]
  - DRY MOUTH [None]
  - HEADACHE [None]
  - HUNGER [None]
  - NAUSEA [None]
  - NEUROPATHY [None]
  - SPEECH DISORDER [None]
  - URINARY INCONTINENCE [None]
  - WEIGHT INCREASED [None]
